FAERS Safety Report 25638096 (Version 1)
Quarter: 2025Q3

REPORT INFORMATION
  Report Type: Spontaneous
  Country: US (occurrence: US)
  Receive Date: 20250804
  Receipt Date: 20250804
  Transmission Date: 20251021
  Serious: Yes (Other)
  Sender: MYLAN
  Company Number: US-MYLANLABS-2025M1065183

PATIENT
  Age: 73 Year
  Sex: Male

DRUGS (16)
  1. PREDNISONE [Suspect]
     Active Substance: PREDNISONE
     Indication: Pemphigoid
  2. PREDNISONE [Suspect]
     Active Substance: PREDNISONE
     Route: 048
  3. PREDNISONE [Suspect]
     Active Substance: PREDNISONE
     Route: 048
  4. PREDNISONE [Suspect]
     Active Substance: PREDNISONE
  5. TRIAMCINOLONE [Suspect]
     Active Substance: TRIAMCINOLONE
     Indication: Pemphigoid
  6. TRIAMCINOLONE [Suspect]
     Active Substance: TRIAMCINOLONE
     Route: 061
  7. TRIAMCINOLONE [Suspect]
     Active Substance: TRIAMCINOLONE
     Route: 061
  8. TRIAMCINOLONE [Suspect]
     Active Substance: TRIAMCINOLONE
  9. HYDROCORTISONE [Suspect]
     Active Substance: HYDROCORTISONE
     Indication: Pemphigoid
  10. HYDROCORTISONE [Suspect]
     Active Substance: HYDROCORTISONE
     Route: 061
  11. HYDROCORTISONE [Suspect]
     Active Substance: HYDROCORTISONE
     Route: 061
  12. HYDROCORTISONE [Suspect]
     Active Substance: HYDROCORTISONE
  13. KENALOG [Suspect]
     Active Substance: TRIAMCINOLONE ACETONIDE
     Indication: Pemphigoid
  14. KENALOG [Suspect]
     Active Substance: TRIAMCINOLONE ACETONIDE
     Route: 030
  15. KENALOG [Suspect]
     Active Substance: TRIAMCINOLONE ACETONIDE
     Route: 030
  16. KENALOG [Suspect]
     Active Substance: TRIAMCINOLONE ACETONIDE

REACTIONS (1)
  - Drug ineffective [Unknown]
